FAERS Safety Report 4447709-1 (Version None)
Quarter: 2004Q3

REPORT INFORMATION
  Report Type: 
  Country: None (occurrence: None)
  Receive Date: 20040812
  Receipt Date: 20040519
  Transmission Date: 20050211
  Serious: No
  Sender: FDA-Public Use
  Company Number: USA040567998

PATIENT
  Age: 78 Year
  Sex: Male
  Weight: 77 kg

DRUGS (5)
  1. CIALIS [Suspect]
     Indication: ERECTILE DYSFUNCTION
     Dosage: 20 MG/1 WEEK
     Dates: start: 20040430
  2. ASPIRIN [Concomitant]
  3. NEXIUM [Concomitant]
  4. FLOMAX XR (TAMSULOSIN HYDROCHLORIDE) [Concomitant]
  5. MULTI-VITAMIN [Concomitant]

REACTIONS (1)
  - THERAPEUTIC RESPONSE DECREASED [None]
